FAERS Safety Report 18586995 (Version 1)
Quarter: 2020Q4

REPORT INFORMATION
  Report Type: Spontaneous
  Country: US (occurrence: US)
  Receive Date: 20201207
  Receipt Date: 20201207
  Transmission Date: 20210114
  Serious: Yes (Other)
  Sender: FDA-Public Use
  Company Number: US-PFIZER INC-2020477162

PATIENT
  Age: 53 Year
  Sex: Female
  Weight: 53.98 kg

DRUGS (6)
  1. EFFEXOR XR [Suspect]
     Active Substance: VENLAFAXINE HYDROCHLORIDE
     Dosage: 75 MG
     Route: 048
     Dates: start: 2020, end: 2020
  2. WELLBUTRIN [Concomitant]
     Active Substance: BUPROPION HYDROCHLORIDE
     Indication: MAJOR DEPRESSION
     Dosage: 150MG AND LOWERED IT TO 25 MG ONCE DAILY
     Dates: start: 2014
  3. ALPRAZOLAM. [Concomitant]
     Active Substance: ALPRAZOLAM
     Indication: INSOMNIA
     Dosage: 5 MG, AS NEEDED
     Dates: start: 2014
  4. LISINOPRIL. [Concomitant]
     Active Substance: LISINOPRIL
     Indication: HYPERTENSION
     Dosage: 25 MG, 1X/DAY
     Dates: start: 2016
  5. EFFEXOR XR [Suspect]
     Active Substance: VENLAFAXINE HYDROCHLORIDE
     Indication: MAJOR DEPRESSION
     Dosage: 37.5 MG, 1X/DAY
     Route: 048
     Dates: start: 202008, end: 2020
  6. ZOFRAN [Concomitant]
     Active Substance: ONDANSETRON HYDROCHLORIDE
     Indication: IMPAIRED GASTRIC EMPTYING
     Dosage: 0.8 MG, 1X/DAY
     Route: 060
     Dates: start: 2000

REACTIONS (10)
  - Suicidal ideation [Unknown]
  - Somnolence [Unknown]
  - Illness [Unknown]
  - Headache [Not Recovered/Not Resolved]
  - Feeling abnormal [Not Recovered/Not Resolved]
  - Mydriasis [Unknown]
  - Loss of personal independence in daily activities [Unknown]
  - Depression [Not Recovered/Not Resolved]
  - Apathy [Not Recovered/Not Resolved]
  - Fatigue [Not Recovered/Not Resolved]

NARRATIVE: CASE EVENT DATE: 2020
